FAERS Safety Report 23535263 (Version 7)
Quarter: 2025Q3

REPORT INFORMATION
  Report Type: Spontaneous
  Country: EU (occurrence: EU)
  Receive Date: 20240218
  Receipt Date: 20250725
  Transmission Date: 20251020
  Serious: Yes (Life-Threatening, Hospitalization, Other)
  Sender: AUROBINDO
  Company Number: EU-AUROBINDO-AUR-APL-2024-007333

PATIENT
  Age: 79 Year
  Sex: Female

DRUGS (8)
  1. FLUCLOXACILLIN [Interacting]
     Active Substance: FLUCLOXACILLIN
     Indication: Antibiotic therapy
     Dosage: 12 GRAM, ONCE A DAY
     Route: 042
  2. FLUCLOXACILLIN [Interacting]
     Active Substance: FLUCLOXACILLIN
     Indication: Pseudomembranous colitis
  3. FLUCLOXACILLIN [Interacting]
     Active Substance: FLUCLOXACILLIN
     Indication: Staphylococcal infection
  4. FLUCLOXACILLIN [Interacting]
     Active Substance: FLUCLOXACILLIN
     Indication: Intervertebral discitis
  5. FLUCLOXACILLIN [Interacting]
     Active Substance: FLUCLOXACILLIN
     Indication: Procedural pain
  6. ACETAMINOPHEN [Interacting]
     Active Substance: ACETAMINOPHEN
     Indication: Pain
     Dosage: 1 GRAM, 3 TIMES A DAY
     Route: 065
  7. ACETAMINOPHEN [Interacting]
     Active Substance: ACETAMINOPHEN
     Indication: Symptomatic treatment
     Dosage: 4 GRAM, ONCE A DAY
     Route: 065
  8. ACETAMINOPHEN [Interacting]
     Active Substance: ACETAMINOPHEN
     Indication: Procedural pain

REACTIONS (7)
  - Pyroglutamic acidosis [Recovered/Resolved]
  - Metabolic acidosis [Recovered/Resolved]
  - Drug interaction [Recovered/Resolved]
  - Altered state of consciousness [Unknown]
  - Fatigue [Unknown]
  - Tachypnoea [Unknown]
  - Pain [Unknown]
